FAERS Safety Report 14376554 (Version 1)
Quarter: 2018Q1

REPORT INFORMATION
  Report Type: Spontaneous
  Country: US (occurrence: US)
  Receive Date: 20180111
  Receipt Date: 20180111
  Transmission Date: 20180509
  Serious: No
  Sender: FDA-Public Use
  Company Number: US-DRREDDYS-USA/USA/17/0092981

PATIENT
  Age: 68 Year
  Sex: Male
  Weight: 72.5 kg

DRUGS (2)
  1. NICODERM CQ [Concomitant]
     Active Substance: NICOTINE
     Indication: SMOKING CESSATION THERAPY
     Route: 062
  2. HABITROL [Suspect]
     Active Substance: NICOTINE
     Indication: SMOKING CESSATION THERAPY
     Route: 062

REACTIONS (3)
  - Wrong technique in product usage process [Unknown]
  - Incorrect drug administration duration [None]
  - Nicotine dependence [Not Recovered/Not Resolved]
